FAERS Safety Report 8521638-6 (Version None)
Quarter: 2012Q3

REPORT INFORMATION
  Report Type: 
  Country: None (occurrence: None)
  Receive Date: 20120719
  Receipt Date: 20120709
  Transmission Date: 20120928
  Serious: Yes (Hospitalization, Other)
  Sender: FDA-Public Use
  Company Number: ES-BRISTOL-MYERS SQUIBB COMPANY-16685950

PATIENT
  Age: 64 Year
  Sex: Female

DRUGS (9)
  1. ABATACEPT [Suspect]
     Indication: SYSTEMIC LUPUS ERYTHEMATOSUS
     Dosage: 7MAY12,22MAY12,7JUN12
     Dates: start: 20120507
  2. PREDNISONE TAB [Concomitant]
     Dosage: 10-0-5
  3. ADALAT [Concomitant]
  4. ISONIAZID [Concomitant]
     Dosage: CEMIDON B6 300MG EMPTY STOMACH
  5. LEVOTHYROXINE SODIUM [Concomitant]
  6. ATORVASTATIN [Concomitant]
     Dosage: 1 DF: 10 1C/DIA
  7. DOLQUINE [Concomitant]
     Dosage: 1 DF:200 MG 2 TAB NIGHT
  8. OMEPRAZOLE [Concomitant]
  9. METFORMIN HCL [Concomitant]

REACTIONS (2)
  - LOWER GASTROINTESTINAL HAEMORRHAGE [None]
  - ANAEMIA [None]
